FAERS Safety Report 6134009-7 (Version None)
Quarter: 2009Q1

REPORT INFORMATION
  Report Type: 
  Country: None (occurrence: None)
  Receive Date: 20090326
  Receipt Date: 20090317
  Transmission Date: 20090719
  Serious: Yes (Other)
  Sender: FDA-Public Use
  Company Number: US-ELI_LILLY_AND_COMPANY-US200903004279

PATIENT
  Age: 75 Year
  Sex: Male

DRUGS (5)
  1. CYMBALTA [Suspect]
     Indication: DEPRESSION
     Dosage: 30 MG, DAILY (1/D)
     Route: 048
  2. COGENTIN [Concomitant]
  3. PHOS-NAK [Concomitant]
  4. AMBIEN [Concomitant]
  5. KLONOPIN [Concomitant]

REACTIONS (1)
  - LOSS OF CONSCIOUSNESS [None]
